FAERS Safety Report 7570518-1 (Version None)
Quarter: 2011Q2

REPORT INFORMATION
  Report Type: 
  Country: None (occurrence: None)
  Receive Date: 20110624
  Receipt Date: 20110323
  Transmission Date: 20111010
  Serious: No
  Sender: FDA-Public Use
  Company Number: US-ALLERGAN-1104109US

PATIENT
  Age: 60 Year
  Sex: Female

DRUGS (2)
  1. LATISSE [Suspect]
     Dosage: 1 GTT, UNK
     Route: 061
     Dates: start: 20110101
  2. LATISSE [Suspect]
     Indication: MADAROSIS
     Dosage: 1 GTT, QHS
     Route: 061
     Dates: start: 20101101, end: 20101201

REACTIONS (4)
  - TRICHORRHEXIS [None]
  - MADAROSIS [None]
  - EYELIDS PRURITUS [None]
  - WRONG TECHNIQUE IN DRUG USAGE PROCESS [None]
